FAERS Safety Report 19065337 (Version 1)
Quarter: 2021Q1

REPORT INFORMATION
  Report Type: Spontaneous
  Country: FR (occurrence: FR)
  Receive Date: 20210327
  Receipt Date: 20210327
  Transmission Date: 20210420
  Serious: Yes (Other)
  Sender: FDA-Public Use
  Company Number: FR-TAKEDA-2020TUS055513

PATIENT
  Age: 76 Year
  Sex: Male

DRUGS (5)
  1. HUMAN NORMAL IMMUNOGLOBULIN [Suspect]
     Active Substance: HUMAN IMMUNOGLOBULIN G
     Indication: GUILLAIN-BARRE SYNDROME
     Dosage: 2 GRAM PER KILOGRAM IN DAYS
     Route: 042
     Dates: start: 202003
  2. ALBUMIN [Concomitant]
     Active Substance: ALBUMIN HUMAN
  3. GELOFUSINE [GELATIN;POTASSIUM CHLORIDE;SODIUM CHLORIDE] [Concomitant]
  4. METHYLPREDNISOLONE. [Concomitant]
     Active Substance: METHYLPREDNISOLONE
     Dosage: 500 MILLIGRAM, QD
     Route: 058
  5. PREDNISONE. [Concomitant]
     Active Substance: PREDNISONE
     Dosage: 0.5 MILLIGRAM/KILOGRAM
     Route: 048

REACTIONS (2)
  - Drug ineffective [Unknown]
  - No adverse event [Unknown]
